FAERS Safety Report 20626507 (Version 1)
Quarter: 2022Q1

REPORT INFORMATION
  Report Type: Spontaneous
  Country: TH (occurrence: TH)
  Receive Date: 20220323
  Receipt Date: 20220323
  Transmission Date: 20220423
  Serious: Yes (Hospitalization, Other)
  Sender: FDA-Public Use
  Company Number: TH-ALVOGEN-2022-ALVOGEN-119155

PATIENT
  Age: 32 Year
  Sex: Male
  Weight: 49 kg

DRUGS (3)
  1. LIDOCAINE [Suspect]
     Active Substance: LIDOCAINE
     Indication: Liposuction
     Dosage: 2 % LIDOCAINE
     Route: 058
  2. EPINEPHRINE [Concomitant]
     Active Substance: EPINEPHRINE
     Indication: Liposuction
     Dosage: 0.2 MG IN 500 ML OF RINGER^S LACTATE?SOLUTION
  3. CALCIUM CHLORIDE\POTASSIUM CHLORIDE\SODIUM LACTATE [Concomitant]
     Active Substance: CALCIUM CHLORIDE\POTASSIUM CHLORIDE\SODIUM LACTATE
     Indication: Liposuction

REACTIONS (8)
  - Generalised tonic-clonic seizure [Recovered/Resolved]
  - Overdose [Unknown]
  - Cardiac arrest [Recovered/Resolved]
  - Pulseless electrical activity [Recovered/Resolved]
  - Hypoxic-ischaemic encephalopathy [Recovered/Resolved with Sequelae]
  - Bradycardia [Recovered/Resolved]
  - Metabolic acidosis [Recovered/Resolved]
  - Local anaesthetic systemic toxicity [Recovered/Resolved]
